FAERS Safety Report 16955859 (Version 1)
Quarter: 2019Q4

REPORT INFORMATION
  Report Type: Spontaneous
  Country: US (occurrence: US)
  Receive Date: 20191023
  Receipt Date: 20191023
  Transmission Date: 20200122
  Serious: Yes (Disabling)
  Sender: FDA-Public Use
  Company Number: None

PATIENT
  Age: 47 Year
  Sex: Female
  Weight: 63 kg

DRUGS (6)
  1. CALCIUM + D [Concomitant]
     Active Substance: CALCIUM\VITAMIN D
  2. WELLBUTRIN [Concomitant]
     Active Substance: BUPROPION HYDROCHLORIDE
  3. IRON [Concomitant]
     Active Substance: IRON
  4. CANTHARONE PLUS [Suspect]
     Active Substance: CANTHARIDIN\PODOPHYLLUM RESIN\SALICYLIC ACID
     Indication: SKIN PAPILLOMA
     Route: 061
     Dates: start: 20190716, end: 20190909
  5. ALDACTONE [Concomitant]
     Active Substance: SPIRONOLACTONE
  6. SYNTHROID [Concomitant]
     Active Substance: LEVOTHYROXINE SODIUM

REACTIONS (6)
  - Skin ulcer [None]
  - Skin papilloma [None]
  - Gait disturbance [None]
  - Condition aggravated [None]
  - Peripheral swelling [None]
  - Blister [None]

NARRATIVE: CASE EVENT DATE: 20190822
